FAERS Safety Report 25564521 (Version 1)
Quarter: 2025Q3

REPORT INFORMATION
  Report Type: Report from Study
  Country: KR (occurrence: KR)
  Receive Date: 20250716
  Receipt Date: 20250716
  Transmission Date: 20251021
  Serious: Yes (Death)
  Sender: SUNOVION
  Company Number: KR-BIAL-BIAL-19189

PATIENT

DRUGS (5)
  1. ESLICARBAZEPINE ACETATE [Suspect]
     Active Substance: ESLICARBAZEPINE ACETATE
     Indication: Epilepsy
     Dosage: 400 MILLIGRAM, QD
     Route: 048
     Dates: start: 20250203, end: 20250205
  2. ESLICARBAZEPINE ACETATE [Suspect]
     Active Substance: ESLICARBAZEPINE ACETATE
     Dosage: 800 MILLIGRAM, QD
     Route: 048
     Dates: start: 20250206, end: 20250217
  3. Epilatam [Concomitant]
     Indication: Epilepsy
     Dosage: 250 MILLIGRAM, BID
     Route: 048
     Dates: start: 20250203
  4. CHOLINE ALFOSCERATE [Concomitant]
     Active Substance: CHOLINE ALFOSCERATE
     Indication: Prophylaxis
     Dosage: 400 MILLIGRAM, QD
     Route: 048
     Dates: start: 20250203
  5. EPILATAM [Concomitant]
     Indication: Epilepsy
     Dosage: 500 MILLIGRAM, BID
     Route: 048
     Dates: start: 20250203

REACTIONS (1)
  - Death [Fatal]

NARRATIVE: CASE EVENT DATE: 20250228
